FAERS Safety Report 6493042-6 (Version None)
Quarter: 2009Q4

REPORT INFORMATION
  Report Type: 
  Country: None (occurrence: None)
  Receive Date: 20091214
  Receipt Date: 20091204
  Transmission Date: 20100525
  Serious: Yes (Congenital Anomaly)
  Sender: FDA-Public Use
  Company Number: GXKR2009GB13134

PATIENT

DRUGS (3)
  1. VENLAFAXINE [Suspect]
     Dosage: MATERNAL DOSE: 150 MG
     Route: 064
  2. ALBUTEROL [Concomitant]
     Dosage: UNK
     Route: 064
     Dates: start: 20070101
  3. FLUTICASONE PROPIONATE W/SALMETEROL XINAFOATE [Concomitant]
     Dosage: UNK
     Route: 064
     Dates: start: 20070101

REACTIONS (2)
  - DRUG EXPOSURE DURING PREGNANCY [None]
  - ENCEPHALOCELE [None]
